FAERS Safety Report 9285212 (Version 1)
Quarter: 2013Q2

REPORT INFORMATION
  Report Type: Spontaneous
  Country: GB (occurrence: GB)
  Receive Date: 20130513
  Receipt Date: 20130513
  Transmission Date: 20140414
  Serious: Yes (Death, Hospitalization)
  Sender: FDA-Public Use
  Company Number: GB-MYLANLABS-2013S1009497

PATIENT
  Age: 36 Year
  Sex: Female
  Weight: 67 kg

DRUGS (3)
  1. CITALOPRAM [Suspect]
     Indication: DEPRESSION
     Route: 048
  2. IBUPROFEN [Concomitant]
     Indication: MALAISE
  3. PARACETAMOL [Concomitant]
     Indication: MALAISE

REACTIONS (18)
  - Decreased appetite [Unknown]
  - Arteriosclerosis [Unknown]
  - Ascites [Unknown]
  - Circulatory collapse [Unknown]
  - Coagulopathy [Unknown]
  - Necrosis [Unknown]
  - Hepatitis acute [Unknown]
  - Diarrhoea [Unknown]
  - Hepatic fibrosis [Unknown]
  - Hepatic steatosis [Unknown]
  - Hepatic failure [Fatal]
  - Hypothermia [Unknown]
  - Intra-abdominal haemorrhage [Unknown]
  - Hepatic necrosis [Unknown]
  - Pulmonary oedema [Unknown]
  - Peritonitis bacterial [Unknown]
  - Renal impairment [Unknown]
  - Sepsis [Unknown]
